FAERS Safety Report 4376470-4 (Version None)
Quarter: 2004Q2

REPORT INFORMATION
  Report Type: 
  Country: None (occurrence: None)
  Receive Date: 20040608
  Receipt Date: 20040526
  Transmission Date: 20050107
  Serious: Yes (Hospitalization)
  Sender: FDA-Public Use
  Company Number: K200400805

PATIENT
  Age: 28 Year
  Sex: Female

DRUGS (4)
  1. SONATA [Suspect]
     Dosage: 14 CAPSULESX10 MG, SINGLE, ORAL
     Route: 048
     Dates: start: 20040518, end: 20040518
  2. FASIGYN      (TINIDAZOLE) , 5 TABLETS [Suspect]
     Dosage: 5 TABLETS, SINGLE, ORAL
     Route: 048
     Dates: start: 20040518, end: 20040518
  3. LORAMET (LORMETAZEPAM) TABLET, 2 MG [Suspect]
     Dosage: 30 TABLETS X 2 MG, SINGLE, ORAL
     Route: 048
     Dates: start: 20040518, end: 20040518
  4. XANAX [Suspect]
     Dosage: 20 TABLETS X.5 MG, SINGLE, ORAL
     Route: 048
     Dates: start: 20040518, end: 20040518

REACTIONS (2)
  - FATIGUE [None]
  - MULTIPLE DRUG OVERDOSE INTENTIONAL [None]
